FAERS Safety Report 9434019 (Version 1)
Quarter: 2013Q3

REPORT INFORMATION
  Report Type: Spontaneous
  Country: IT (occurrence: IT)
  Receive Date: 20130801
  Receipt Date: 20130801
  Transmission Date: 20140515
  Serious: Yes (Hospitalization)
  Sender: FDA-Public Use
  Company Number: IT-ROCHE-1254217

PATIENT
  Age: 49 Year
  Sex: Female

DRUGS (3)
  1. TORADOL [Suspect]
     Indication: BACK PAIN
     Dosage: STRENGTH: 30 MG/ML
     Route: 030
     Dates: start: 20130609, end: 20130611
  2. BENTELAN [Suspect]
     Indication: BACK PAIN
     Route: 030
     Dates: start: 20130609, end: 20130611
  3. ANASTROZOLE [Concomitant]
     Indication: BREAST NEOPLASM
     Route: 048

REACTIONS (3)
  - Hyperchlorhydria [Recovering/Resolving]
  - Nausea [Recovering/Resolving]
  - Vomiting [Recovering/Resolving]
